FAERS Safety Report 25036824 (Version 1)
Quarter: 2025Q1

REPORT INFORMATION
  Report Type: Spontaneous
  Country: AU (occurrence: AU)
  Receive Date: 20250304
  Receipt Date: 20250304
  Transmission Date: 20250408
  Serious: Yes (Hospitalization, Other)
  Sender: MYLAN
  Company Number: AU-MYLANLABS-2025M1017804

PATIENT
  Age: 36 Year
  Sex: Male

DRUGS (10)
  1. CLOZARIL [Suspect]
     Active Substance: CLOZAPINE
     Indication: Schizophrenia
     Dosage: 1 DOSAGE FORM, PM
     Dates: start: 20091121
  2. CLOZARIL [Suspect]
     Active Substance: CLOZAPINE
     Indication: Schizophrenia
     Dosage: 1 DOSAGE FORM, PM
     Dates: start: 20091121
  3. ATOMOXETINE [Concomitant]
     Active Substance: ATOMOXETINE
     Dosage: 1 DOSAGE FORM, AM
  4. OLANZAPINE [Concomitant]
     Active Substance: OLANZAPINE
     Dosage: 1 DOSAGE FORM, PM
  5. QUETIAPINE [Concomitant]
     Active Substance: QUETIAPINE
     Dosage: 1 DOSAGE FORM, AM
  6. PAROXETINE [Concomitant]
     Active Substance: PAROXETINE
     Dosage: 0.5 DOSAGE FORM, AM (HALF TABLET)
  7. ASCORBIC ACID\FERROUS SULFATE [Concomitant]
     Active Substance: ASCORBIC ACID\FERROUS SULFATE
     Dosage: 2 DOSAGE FORM, QD (3250MCG 500MG)
  8. LEVOTHYROXINE [Concomitant]
     Active Substance: LEVOTHYROXINE
     Dosage: 1 DOSAGE FORM, AM
  9. Ostelin [Concomitant]
     Dosage: 1 DOSAGE FORM, AM
  10. TESTOSTERONE [Concomitant]
     Active Substance: TESTOSTERONE
     Dosage: UNK, QD (PUMP DAILY)

REACTIONS (3)
  - Affective disorder [Unknown]
  - Antipsychotic drug level decreased [Not Recovered/Not Resolved]
  - Off label use [Unknown]

NARRATIVE: CASE EVENT DATE: 20230925
